FAERS Safety Report 24211149 (Version 3)
Quarter: 2025Q4

REPORT INFORMATION
  Report Type: Spontaneous
  Country: EU (occurrence: EU)
  Receive Date: 20240814
  Receipt Date: 20251017
  Transmission Date: 20260117
  Serious: Yes (Hospitalization, Other)
  Sender: MYLAN
  Company Number: None

PATIENT
  Age: 38 Year
  Sex: Female

DRUGS (12)
  1. LOPERAMIDE [Suspect]
     Active Substance: LOPERAMIDE
     Indication: Product used for unknown indication
     Dosage: 140 MILLIGRAM, TOTAL
     Dates: start: 20240727
  2. LOPERAMIDE [Suspect]
     Active Substance: LOPERAMIDE
     Dosage: 140 MILLIGRAM, TOTAL
     Route: 065
     Dates: start: 20240727
  3. LOPERAMIDE [Suspect]
     Active Substance: LOPERAMIDE
     Dosage: 140 MILLIGRAM, TOTAL
     Route: 065
     Dates: start: 20240727
  4. LOPERAMIDE [Suspect]
     Active Substance: LOPERAMIDE
     Dosage: 140 MILLIGRAM, TOTAL
     Dates: start: 20240727
  5. PROMETHAZINE HYDROCHLORIDE\THIOUREA [Suspect]
     Active Substance: PROMETHAZINE HYDROCHLORIDE\THIOUREA
     Indication: Product used for unknown indication
     Dosage: 250 MILLIGRAM, TOTAL
     Dates: start: 20240727
  6. PROMETHAZINE HYDROCHLORIDE\THIOUREA [Suspect]
     Active Substance: PROMETHAZINE HYDROCHLORIDE\THIOUREA
     Dosage: 250 MILLIGRAM, TOTAL
     Route: 065
     Dates: start: 20240727
  7. PROMETHAZINE HYDROCHLORIDE\THIOUREA [Suspect]
     Active Substance: PROMETHAZINE HYDROCHLORIDE\THIOUREA
     Dosage: 250 MILLIGRAM, TOTAL
     Route: 065
     Dates: start: 20240727
  8. PROMETHAZINE HYDROCHLORIDE\THIOUREA [Suspect]
     Active Substance: PROMETHAZINE HYDROCHLORIDE\THIOUREA
     Dosage: 250 MILLIGRAM, TOTAL
     Dates: start: 20240727
  9. MECLIZINE HYDROCHLORIDE [Suspect]
     Active Substance: MECLIZINE HYDROCHLORIDE
     Indication: Product used for unknown indication
     Dosage: 250 MILLIGRAM, TOTAL
     Dates: start: 20240727
  10. MECLIZINE HYDROCHLORIDE [Suspect]
     Active Substance: MECLIZINE HYDROCHLORIDE
     Dosage: 250 MILLIGRAM, TOTAL
     Route: 065
     Dates: start: 20240727
  11. MECLIZINE HYDROCHLORIDE [Suspect]
     Active Substance: MECLIZINE HYDROCHLORIDE
     Dosage: 250 MILLIGRAM, TOTAL
     Route: 065
     Dates: start: 20240727
  12. MECLIZINE HYDROCHLORIDE [Suspect]
     Active Substance: MECLIZINE HYDROCHLORIDE
     Dosage: 250 MILLIGRAM, TOTAL
     Dates: start: 20240727

REACTIONS (4)
  - Suicide attempt [Recovering/Resolving]
  - Chest discomfort [Recovering/Resolving]
  - Toxicity to various agents [Recovering/Resolving]
  - Intentional overdose [Recovering/Resolving]

NARRATIVE: CASE EVENT DATE: 20240727
